FAERS Safety Report 7994788-0 (Version None)
Quarter: 2011Q4

REPORT INFORMATION
  Report Type: 
  Country: None (occurrence: None)
  Receive Date: 20111220
  Receipt Date: 20111216
  Transmission Date: 20120403
  Serious: Yes (Death)
  Sender: FDA-Public Use
  Company Number: US-ROCHE-1022765

PATIENT
  Sex: Male
  Weight: 83.99 kg

DRUGS (3)
  1. RIBAVIRIN [Suspect]
     Indication: HEPATITIS
  2. INCIVEK [Suspect]
     Indication: HEPATITIS
  3. PEGASYS [Suspect]
     Indication: HEPATITIS
     Route: 058
     Dates: start: 20110921

REACTIONS (1)
  - DEATH [None]
